FAERS Safety Report 6248865-5 (Version None)
Quarter: 2009Q2

REPORT INFORMATION
  Report Type: 
  Country: None (occurrence: None)
  Receive Date: 20090625
  Receipt Date: 20090616
  Transmission Date: 20091009
  Serious: Yes (Hospitalization)
  Sender: FDA-Public Use
  Company Number: 8047993

PATIENT
  Age: 17 Year
  Sex: Female

DRUGS (4)
  1. LEVETIRACETAM [Suspect]
     Indication: COMPLEX PARTIAL SEIZURES
     Dosage: 250 MG 2/D PO
     Route: 048
  2. LEVETIRACETAM [Suspect]
     Indication: EPILEPSY
     Dosage: 250 MG 2/D PO
     Route: 048
  3. PREDNISONE [Concomitant]
  4. OXCARBAZEPINE [Concomitant]

REACTIONS (17)
  - ABDOMINAL PAIN [None]
  - BLOOD CREATININE INCREASED [None]
  - BLOOD UREA INCREASED [None]
  - BLOOD URINE PRESENT [None]
  - CONFUSIONAL STATE [None]
  - DIARRHOEA [None]
  - DYSKINESIA [None]
  - EOSINOPHILIA [None]
  - FATIGUE [None]
  - FIBROSIS [None]
  - HYDRONEPHROSIS [None]
  - NEPHRITIS ALLERGIC [None]
  - OEDEMA [None]
  - PALLOR [None]
  - PROTEIN URINE PRESENT [None]
  - TUBULOINTERSTITIAL NEPHRITIS [None]
  - VOMITING [None]
